FAERS Safety Report 23845055 (Version 1)
Quarter: 2024Q2

REPORT INFORMATION
  Report Type: Spontaneous
  Country: US (occurrence: US)
  Receive Date: 20240511
  Receipt Date: 20240511
  Transmission Date: 20240715
  Serious: No
  Sender: FDA-Public Use
  Company Number: US-CIPLA LTD.-2023US05368

PATIENT

DRUGS (1)
  1. ALBUTEROL [Suspect]
     Active Substance: ALBUTEROL
     Indication: Product used for unknown indication
     Dosage: UNK, TWICE IN MORNING AND TWICE IN EVENING AND IF HE EXPERIENCES COUGHING AND ASTHMA ISSUES THEN HE
     Route: 065
     Dates: start: 202210

REACTIONS (5)
  - Incorrect dose administered by device [Unknown]
  - Device malfunction [Unknown]
  - Intentional product use issue [Unknown]
  - Cough [Unknown]
  - Asthma [Unknown]
